FAERS Safety Report 7654628-6 (Version None)
Quarter: 2011Q3

REPORT INFORMATION
  Report Type: 
  Country: None (occurrence: None)
  Receive Date: 20110803
  Receipt Date: 20110721
  Transmission Date: 20111222
  Serious: Yes (Life-Threatening, Hospitalization)
  Sender: FDA-Public Use
  Company Number: TR-MYLANLABS-2011S1015601

PATIENT
  Age: 16 Year
  Sex: Female

DRUGS (1)
  1. AMLODIPINE [Suspect]
     Indication: OVERDOSE
     Route: 048

REACTIONS (6)
  - RESPIRATORY ARREST [None]
  - OVERDOSE [None]
  - HYPOTENSION [None]
  - TACHYCARDIA [None]
  - METABOLIC ACIDOSIS [None]
  - PULMONARY OEDEMA [None]
